FAERS Safety Report 5466892-2 (Version None)
Quarter: 2007Q3

REPORT INFORMATION
  Report Type: 
  Country: None (occurrence: None)
  Receive Date: 20070920
  Receipt Date: 20070911
  Transmission Date: 20080115
  Serious: Yes (Hospitalization)
  Sender: FDA-Public Use
  Company Number: 2007-04213

PATIENT
  Age: 55 Year
  Sex: Female
  Weight: 60 kg

DRUGS (13)
  1. GABAPENTIN [Suspect]
     Indication: MUSCULOSKELETAL PAIN
     Dosage: 600 MG, TID
     Dates: start: 20050501
  2. FENTANYL CITRATE [Suspect]
     Indication: INDUCTION OF ANAESTHESIA
     Dosage: 0.1 MG, SINGLE, INTRAVENOUS, 0.1 MG, SINGLE, INTRAVENOUS, 0.1 MG, SINGLE, INTRAVENOUS
     Route: 042
     Dates: start: 20050701, end: 20050701
  3. FENTANYL CITRATE [Suspect]
     Indication: INDUCTION OF ANAESTHESIA
     Dosage: 0.1 MG, SINGLE, INTRAVENOUS, 0.1 MG, SINGLE, INTRAVENOUS, 0.1 MG, SINGLE, INTRAVENOUS
     Route: 042
     Dates: start: 20060601, end: 20060601
  4. FENTANYL CITRATE [Suspect]
     Indication: INDUCTION OF ANAESTHESIA
     Dosage: 0.1 MG, SINGLE, INTRAVENOUS, 0.1 MG, SINGLE, INTRAVENOUS, 0.1 MG, SINGLE, INTRAVENOUS
     Route: 042
     Dates: start: 20061201, end: 20061201
  5. SEVOFLURANE [Suspect]
     Indication: INDUCTION OF ANAESTHESIA
     Dosage: 1.8-2.2%, SINGLE, RESPIRATORY
     Route: 055
     Dates: start: 20061201, end: 20061201
  6. ISOFLURANE [Suspect]
     Indication: INDUCTION OF ANAESTHESIA
     Dosage: 0.9  .4%, SINGLE, RESPIRATORY
     Route: 055
     Dates: start: 20060601, end: 20060601
  7. PROPOFOL [Suspect]
     Indication: INDUCTION OF ANAESTHESIA
     Dosage: 150 MG, SINGLE, INTRAVENOUS, SINGLE, INTRAVENOUS
     Route: 042
     Dates: start: 20050701, end: 20050701
  8. PROPOFOL [Suspect]
     Indication: INDUCTION OF ANAESTHESIA
     Dosage: 150 MG, SINGLE, INTRAVENOUS, SINGLE, INTRAVENOUS
     Route: 042
     Dates: start: 20060601, end: 20060601
  9. ALFENTANIL [Suspect]
     Indication: INDUCTION OF ANAESTHESIA
     Dosage: 0.5 MG,SINGLE, INTRAVENOUS
     Route: 042
     Dates: start: 20050701, end: 20050701
  10. CODEINE PHOSPHATE [Concomitant]
  11. ACETAMINOPHEN [Concomitant]
  12. DEXAMETHASONE 0.5MG TAB [Concomitant]
  13. OXYGEN (OXYGEN) [Concomitant]

REACTIONS (3)
  - DRUG INTERACTION [None]
  - DYSTONIA [None]
  - MYOTONIA [None]
